FAERS Safety Report 4588711-9 (Version None)
Quarter: 2005Q1

REPORT INFORMATION
  Report Type: 
  Country: None (occurrence: None)
  Receive Date: 20050214
  Receipt Date: 20050214
  Transmission Date: 20050727
  Serious: Yes (Hospitalization)
  Sender: FDA-Public Use
  Company Number: None

PATIENT
  Sex: Male

DRUGS (2)
  1. CONCERTA [Suspect]
     Indication: DEPRESSION
     Dosage: ONE, DAILY
  2. PAXIL CR [Suspect]
     Indication: HEAD INJURY
     Dosage: ONE, DAILY

REACTIONS (7)
  - ALCOHOL WITHDRAWAL SYNDROME [None]
  - DEPRESSION [None]
  - HYPERHIDROSIS [None]
  - MENTAL STATUS CHANGES [None]
  - PYREXIA [None]
  - SEROTONIN SYNDROME [None]
  - TREMOR [None]
